FAERS Safety Report 5223620-3 (Version None)
Quarter: 2007Q1

REPORT INFORMATION
  Report Type: 
  Country: None (occurrence: None)
  Receive Date: 20070130
  Receipt Date: 20070122
  Transmission Date: 20070707
  Serious: Yes (Other)
  Sender: FDA-Public Use
  Company Number: PHNU2007DE00614

PATIENT
  Age: 69 Year
  Sex: Female

DRUGS (5)
  1. AREDIA [Suspect]
     Indication: METASTASES TO BONE
     Dosage: 50 MG, UNK
     Dates: start: 20030901
  2. BONDRONAT [Suspect]
     Dosage: 50 MG, QD
     Route: 048
     Dates: start: 20060301, end: 20060801
  3. TAMOXIFEN CITRATE [Concomitant]
     Route: 048
     Dates: start: 20050501
  4. FASLODEX [Concomitant]
     Dates: start: 20041201, end: 20050501
  5. CAPECITABINE [Concomitant]
     Route: 065
     Dates: start: 20060201

REACTIONS (4)
  - DENTAL OPERATION [None]
  - OSTEONECROSIS [None]
  - PERIODONTITIS [None]
  - TOOTH EXTRACTION [None]
